FAERS Safety Report 5810533-9 (Version None)
Quarter: 2008Q3

REPORT INFORMATION
  Report Type: 
  Country: None (occurrence: None)
  Receive Date: 20080715
  Receipt Date: 20080703
  Transmission Date: 20090109
  Serious: Yes (Hospitalization)
  Sender: FDA-Public Use
  Company Number: JP-ASTRAZENECA-2008SE03450

PATIENT
  Age: 55 Year
  Sex: Male
  Weight: 65 kg

DRUGS (5)
  1. BLOPRESS [Suspect]
     Indication: HYPERTENSION
     Route: 048
     Dates: start: 20070503
  2. CATACLOT [Concomitant]
     Indication: LACUNAR INFARCTION
     Route: 042
     Dates: start: 20070501, end: 20070510
  3. ASPIRIN [Concomitant]
     Indication: LACUNAR INFARCTION
     Route: 048
     Dates: start: 20070503
  4. CYANOCOBALAMIN [Concomitant]
     Route: 065
     Dates: start: 20070502
  5. ATP [Concomitant]
     Route: 048
     Dates: start: 20070502

REACTIONS (2)
  - CONVULSION [None]
  - DIABETES MELLITUS [None]
